FAERS Safety Report 5700615-4 (Version None)
Quarter: 2008Q2

REPORT INFORMATION
  Report Type: 
  Country: None (occurrence: None)
  Receive Date: 20080407
  Receipt Date: 20080331
  Transmission Date: 20081010
  Serious: Yes (Hospitalization)
  Sender: FDA-Public Use
  Company Number: 2008SP006266

PATIENT
  Age: 52 Year
  Sex: Female

DRUGS (4)
  1. PEG-INTRON [Suspect]
     Indication: HEPATITIS C
     Dosage: SC
     Route: 058
     Dates: start: 20071028
  2. RIBAVIRIN [Suspect]
     Indication: HEPATITIS C
     Dosage: PO
     Route: 048
     Dates: start: 20071028
  3. CLONOPIN [Concomitant]
  4. EFFEXOR [Concomitant]

REACTIONS (11)
  - AGGRESSION [None]
  - AGITATION [None]
  - ALOPECIA [None]
  - CANDIDIASIS [None]
  - CONFUSIONAL STATE [None]
  - FUNGAL INFECTION [None]
  - INTESTINAL OBSTRUCTION [None]
  - MANIA [None]
  - MEMORY IMPAIRMENT [None]
  - RETCHING [None]
  - WHITE BLOOD CELL COUNT DECREASED [None]
